FAERS Safety Report 13507241 (Version 1)
Quarter: 2017Q2

REPORT INFORMATION
  Report Type: Spontaneous
  Country: US (occurrence: US)
  Receive Date: 20170503
  Receipt Date: 20170503
  Transmission Date: 20170830
  Serious: No
  Sender: FDA-Public Use
  Company Number: US-TEVA-692781USA

PATIENT
  Age: 92 Year
  Sex: Male
  Weight: 45.4 kg

DRUGS (1)
  1. MICONAZOLE. [Suspect]
     Active Substance: MICONAZOLE
     Indication: FUNGAL SKIN INFECTION
     Dates: start: 20160802

REACTIONS (5)
  - Burning sensation [Unknown]
  - Middle insomnia [Unknown]
  - Drug ineffective [Unknown]
  - Insomnia [Unknown]
  - Oedema [Unknown]

NARRATIVE: CASE EVENT DATE: 2016
